FAERS Safety Report 10689454 (Version 1)
Quarter: 2015Q1

REPORT INFORMATION
  Report Type: Spontaneous
  Country: US (occurrence: None)
  Receive Date: 20150102
  Receipt Date: 20150102
  Transmission Date: 20150720
  Serious: Yes (Hospitalization, Other)
  Sender: FDA-Public Use
  Company Number: None

PATIENT
  Age: 69 Year
  Sex: Male
  Weight: 74.5 kg

DRUGS (2)
  1. DEXTROSE/HEPARIN [Suspect]
     Active Substance: DEXTROSE\HEPARIN
     Indication: DEEP VEIN THROMBOSIS
     Dosage: 1500 UNITS UD IV
     Route: 042
     Dates: start: 20140723, end: 20140729
  2. ENOXAPARIN (GENERIC) [Suspect]
     Active Substance: ENOXAPARIN
     Indication: DEEP VEIN THROMBOSIS
     Route: 048
     Dates: start: 20140729, end: 20140802

REACTIONS (2)
  - Heparin-induced thrombocytopenia [None]
  - Arterial thrombosis [None]

NARRATIVE: CASE EVENT DATE: 20140804
